FAERS Safety Report 5001560-2 (Version None)
Quarter: 2006Q2

REPORT INFORMATION
  Report Type: 
  Country: None (occurrence: None)
  Receive Date: 20060510
  Receipt Date: 20060502
  Transmission Date: 20061013
  Serious: Yes (Other)
  Sender: FDA-Public Use
  Company Number: 145621USA

PATIENT
  Age: 31 Year
  Sex: Female

DRUGS (1)
  1. COPAXONE [Suspect]
     Indication: MULTIPLE SCLEROSIS
     Dates: start: 20050605, end: 20060101

REACTIONS (3)
  - DRUG EXPOSURE BEFORE PREGNANCY [None]
  - INTRA-UTERINE DEATH [None]
  - PREGNANCY [None]
